FAERS Safety Report 9791766 (Version 1)
Quarter: 2014Q1

REPORT INFORMATION
  Report Type: Report from Study
  Country: US (occurrence: US)
  Receive Date: 20140102
  Receipt Date: 20140102
  Transmission Date: 20141002
  Serious: Yes (Hospitalization)
  Sender: FDA-Public Use
  Company Number: US-JNJFOC-20131216640

PATIENT
  Age: 14 Year
  Sex: Male
  Weight: 57.3 kg

DRUGS (4)
  1. REMICADE [Suspect]
     Indication: INFLAMMATORY BOWEL DISEASE
     Route: 042
     Dates: start: 20120529, end: 20131028
  2. CELEBREX [Concomitant]
     Route: 065
  3. MULTIVITAMINS [Concomitant]
     Route: 065
  4. CHOLECALCIFEROL [Concomitant]
     Route: 065

REACTIONS (1)
  - Inflammatory bowel disease [Recovered/Resolved]
